FAERS Safety Report 8024395-5 (Version None)
Quarter: 2012Q1

REPORT INFORMATION
  Report Type: 
  Country: None (occurrence: None)
  Receive Date: 20120105
  Receipt Date: 20120105
  Transmission Date: 20120608
  Serious: Yes (Hospitalization, Disabling, Other)
  Sender: FDA-Public Use
  Company Number: None

PATIENT
  Age: 66 Year
  Sex: Female
  Weight: 77.11 kg

DRUGS (1)
  1. CLODERM [Suspect]
     Dates: start: 20111231, end: 20111231

REACTIONS (10)
  - NO THERAPEUTIC RESPONSE [None]
  - PRODUCT LABEL ISSUE [None]
  - OCULAR HYPERAEMIA [None]
  - THROAT IRRITATION [None]
  - EYE SWELLING [None]
  - EYE IRRITATION [None]
  - VISUAL IMPAIRMENT [None]
  - GLOSSODYNIA [None]
  - BURNING SENSATION [None]
  - WRONG TECHNIQUE IN DRUG USAGE PROCESS [None]
